FAERS Safety Report 9511916 (Version 1)
Quarter: 2013Q3

REPORT INFORMATION
  Report Type: Spontaneous
  Country: IT (occurrence: None)
  Receive Date: 20130906
  Receipt Date: 20130906
  Transmission Date: 20140515
  Serious: Yes (Other)
  Sender: FDA-Public Use
  Company Number: GER/ITL/13/0034342

PATIENT
  Age: 66 Year
  Sex: Female

DRUGS (7)
  1. IRBESARTAN [Suspect]
     Indication: PRODUCT USED FOR UNKNOWN INDICATION
     Dosage: 1 DOSAGE FORMS, 1 IN 1 TOTAL, ORAL
     Route: 048
     Dates: start: 20130731, end: 20130731
  2. ATENOLOL [Suspect]
     Indication: PRODUCT USED FOR UNKNOWN INDICATION
     Dosage: 1 DOSAGE FORMS, 1 IN 1 D, ORAL
     Route: 048
     Dates: start: 20120801, end: 20130731
  3. EUTIROX (LEVOTHYROXINE SODIUM) [Concomitant]
  4. CARDIOASPIRIN (ACETYLSALICYLIC ACID) [Concomitant]
  5. ATORVASTATIN (ATORVASTATIN) [Concomitant]
  6. PANTOPRAZOLE (PANTOPRAZOLE) [Concomitant]
  7. PARACETAMOL/TRAMADOL HYDROCHLORIDE (ULTRACET) [Concomitant]

REACTIONS (2)
  - Bradycardia [None]
  - Presyncope [None]
